FAERS Safety Report 5430284-2 (Version None)
Quarter: 2007Q3

REPORT INFORMATION
  Report Type: 
  Country: None (occurrence: None)
  Receive Date: 20070731
  Receipt Date: 20070416
  Transmission Date: 20080115
  Serious: No
  Sender: FDA-Public Use
  Company Number: US200704003558

PATIENT
  Age: 54 Year
  Sex: Female
  Weight: 101.6 kg

DRUGS (3)
  1. BYETTA [Suspect]
     Indication: TYPE 2 DIABETES MELLITUS
     Dosage: 5 UG, 2/D, SUBCUTANEOUS
     Route: 058
     Dates: start: 20070301, end: 20070410
  2. EXENATIDE PEN, DISPOSABLE DEVICE [Concomitant]
  3. BYETTA [Suspect]
     Indication: TYPE 2 DIABETES MELLITUS
     Dosage: 10UG SUBCUTANEOUS
     Route: 058
     Dates: start: 20070411

REACTIONS (5)
  - DECREASED APPETITE [None]
  - GASTROOESOPHAGEAL REFLUX DISEASE [None]
  - NAUSEA [None]
  - THROAT IRRITATION [None]
  - WEIGHT DECREASED [None]
